FAERS Safety Report 13512544 (Version 2)
Quarter: 2017Q3

REPORT INFORMATION
  Report Type: Report from Study
  Country: None (occurrence: US)
  Receive Date: 20170504
  Receipt Date: 20170720
  Transmission Date: 20171127
  Serious: Yes (Other)
  Sender: FDA-Public Use
  Company Number: US-ABBVIE-17K-163-1877322-00

PATIENT
  Sex: Female

DRUGS (1)
  1. HUMIRA [Suspect]
     Active Substance: ADALIMUMAB
     Indication: COLITIS ULCERATIVE
     Route: 058

REACTIONS (7)
  - Rectal discharge [Unknown]
  - Blood count abnormal [Recovering/Resolving]
  - Fatigue [Recovering/Resolving]
  - Intestinal haemorrhage [Unknown]
  - Large intestine polyp [Unknown]
  - Large intestinal stenosis [Unknown]
  - Postoperative adhesion [Unknown]

NARRATIVE: CASE EVENT DATE: 2017
